FAERS Safety Report 9728468 (Version 1)
Quarter: 2013Q4

REPORT INFORMATION
  Report Type: Spontaneous
  Country: US (occurrence: None)
  Receive Date: 20131203
  Receipt Date: 20131203
  Transmission Date: 20140711
  Serious: No
  Sender: FDA-Public Use
  Company Number: None

PATIENT
  Age: 66 Year
  Sex: Male
  Weight: 119.3 kg

DRUGS (14)
  1. VICTOZA [Suspect]
     Indication: TYPE 2 DIABETES MELLITUS
     Route: 058
     Dates: start: 201205, end: 201310
  2. NPH INSULIN [Concomitant]
  3. REGULAR INSULIN [Concomitant]
  4. LIRAGLUTIDE [Concomitant]
  5. METFORMIN [Concomitant]
  6. LISINOPRIL [Concomitant]
  7. HYDRALAZINE [Concomitant]
  8. HCTZ [Concomitant]
  9. KC1 [Concomitant]
  10. ATENOLOL [Concomitant]
  11. PRAVACOL [Concomitant]
  12. ASPIRIN [Concomitant]
  13. COUMADIN [Concomitant]
  14. GABAPENTIN [Concomitant]

REACTIONS (1)
  - Adenocarcinoma pancreas [None]
